FAERS Safety Report 14433179 (Version 1)
Quarter: 2018Q1

REPORT INFORMATION
  Report Type: Spontaneous
  Country: US (occurrence: US)
  Receive Date: 20180124
  Receipt Date: 20180124
  Transmission Date: 20180509
  Serious: No
  Sender: FDA-Public Use
  Company Number: US-PCCINC-2017-PEL-000807

PATIENT

DRUGS (2)
  1. GABLOFEN [Suspect]
     Active Substance: BACLOFEN
     Dosage: 40 ML, UNK
     Route: 037
     Dates: start: 20170215
  2. GABLOFEN [Suspect]
     Active Substance: BACLOFEN
     Dosage: 40 ML, UNK
     Route: 037
     Dates: start: 20170719

REACTIONS (1)
  - Product colour issue [Unknown]
